FAERS Safety Report 9137335 (Version 1)
Quarter: 2013Q1

REPORT INFORMATION
  Report Type: Spontaneous
  Country: US (occurrence: US)
  Receive Date: 20130219
  Receipt Date: 20130219
  Transmission Date: 20140127
  Serious: No
  Sender: FDA-Public Use
  Company Number: US-BRISTOL-MYERS SQUIBB COMPANY-16504946

PATIENT
  Age: 58 Year
  Sex: Female
  Weight: 80.72 kg

DRUGS (1)
  1. ORENCIA [Suspect]
     Dosage: TOTAL:6 DOSES
     Route: 042
     Dates: end: 20120229

REACTIONS (1)
  - Dyspnoea [Recovering/Resolving]
